FAERS Safety Report 6871586-2 (Version None)
Quarter: 2010Q3

REPORT INFORMATION
  Report Type: 
  Country: None (occurrence: None)
  Receive Date: 20100723
  Receipt Date: 20100720
  Transmission Date: 20110219
  Serious: Yes (Death)
  Sender: FDA-Public Use
  Company Number: PHHY2010US39204

PATIENT
  Sex: Male

DRUGS (3)
  1. GLEEVEC [Suspect]
     Indication: CHRONIC MYELOID LEUKAEMIA
     Dosage: 400 MG, QD
     Route: 048
     Dates: start: 20091223
  2. FENTANYL [Concomitant]
     Indication: PAIN
     Route: 062
  3. OXYCODONE [Concomitant]

REACTIONS (13)
  - CHORDOMA [None]
  - CONSTIPATION [None]
  - DECREASED APPETITE [None]
  - FATIGUE [None]
  - GAIT DISTURBANCE [None]
  - GENERAL PHYSICAL HEALTH DETERIORATION [None]
  - HYPOPHAGIA [None]
  - LISTLESS [None]
  - MALIGNANT NEOPLASM PROGRESSION [None]
  - MUSCULAR WEAKNESS [None]
  - PAIN [None]
  - SOMNOLENCE [None]
  - URINE ANALYSIS ABNORMAL [None]
